FAERS Safety Report 13738989 (Version 1)
Quarter: 2017Q3

REPORT INFORMATION
  Report Type: Report from Study
  Country: US (occurrence: US)
  Receive Date: 20170710
  Receipt Date: 20170710
  Transmission Date: 20171127
  Serious: No
  Sender: FDA-Public Use
  Company Number: US-SAOL THERAPEUTICS-2017SAO00636

PATIENT
  Age: 46 Year
  Sex: Female

DRUGS (8)
  1. CLONIDINE. [Suspect]
     Active Substance: CLONIDINE
     Dosage: 367.76 ?G, \DAY
     Route: 037
     Dates: start: 20151001
  2. DILAUDID [Suspect]
     Active Substance: HYDROMORPHONE HYDROCHLORIDE
     Dosage: 2.7582 MG, \DAY
     Route: 037
     Dates: start: 20151001
  3. BUPIVACAINE. [Suspect]
     Active Substance: BUPIVACAINE
     Dosage: 27.582 MG, \DAY
     Route: 037
     Dates: start: 20151001
  4. DILAUDID [Suspect]
     Active Substance: HYDROMORPHONE HYDROCHLORIDE
     Dosage: 1.8013 MG, \DAY
     Route: 037
     Dates: start: 20151001
  5. BUPIVACAINE. [Suspect]
     Active Substance: BUPIVACAINE
     Dosage: 18.013 MG, \DAY
     Route: 037
     Dates: start: 20151001
  6. CLONIDINE. [Suspect]
     Active Substance: CLONIDINE
     Dosage: 240.17 ?G, \DAY
     Route: 037
     Dates: start: 20151001
  7. COMPOUNDED BACLOFEN [Suspect]
     Active Substance: BACLOFEN
     Dosage: 480.34 ?G, \DAY
     Route: 037
     Dates: start: 20151001
  8. COMPOUNDED BACLOFEN [Suspect]
     Active Substance: BACLOFEN
     Dosage: 735.52 ?G, \DAY
     Route: 037
     Dates: start: 20151001

REACTIONS (1)
  - Somnolence [Not Recovered/Not Resolved]

NARRATIVE: CASE EVENT DATE: 20151001
